FAERS Safety Report 21591403 (Version 1)
Quarter: 2022Q4

REPORT INFORMATION
  Report Type: Report from Study
  Country: US (occurrence: US)
  Receive Date: 20221114
  Receipt Date: 20221114
  Transmission Date: 20230112
  Serious: No
  Sender: FDA-Public Use
  Company Number: US-ABBVIE-22K-163-4443978-00

PATIENT
  Age: 69 Year
  Sex: Female

DRUGS (4)
  1. HUMIRA [Suspect]
     Active Substance: ADALIMUMAB
     Indication: Hidradenitis
     Dosage: DAY 1?STRENGTH: 40 MG
     Route: 058
     Dates: start: 20210917, end: 20210917
  2. HUMIRA [Suspect]
     Active Substance: ADALIMUMAB
     Dosage: DAY 15?STRENGTH: 40 MG
     Route: 058
     Dates: start: 20211001, end: 20211001
  3. HUMIRA [Suspect]
     Active Substance: ADALIMUMAB
     Dosage: DAY 29?STRENGTH: 40 MG
     Route: 058
     Dates: start: 20211015
  4. HUMIRA [Suspect]
     Active Substance: ADALIMUMAB
     Dosage: STRENGTH: 40 MG
     Route: 058

REACTIONS (8)
  - Pruritus [Unknown]
  - Pruritus [Recovered/Resolved]
  - Hidradenitis [Unknown]
  - Pain of skin [Recovered/Resolved]
  - Hidradenitis [Recovered/Resolved]
  - Rash [Unknown]
  - Therapeutic product effect decreased [Unknown]
  - Pain of skin [Unknown]

NARRATIVE: CASE EVENT DATE: 20220501
